FAERS Safety Report 23951134 (Version 1)
Quarter: 2024Q2

REPORT INFORMATION
  Report Type: Spontaneous
  Country: CA (occurrence: CA)
  Receive Date: 20240607
  Receipt Date: 20240607
  Transmission Date: 20240715
  Serious: Yes (Other)
  Sender: FDA-Public Use
  Company Number: CA-TEVA-VS-3203888

PATIENT
  Age: 55 Year
  Sex: Female

DRUGS (3)
  1. CARBAMAZEPINE [Suspect]
     Active Substance: CARBAMAZEPINE
     Indication: Product used for unknown indication
     Route: 065
  2. GABAPENTIN [Concomitant]
     Active Substance: GABAPENTIN
     Indication: Product used for unknown indication
     Route: 065
  3. OCRELIZUMAB [Suspect]
     Active Substance: OCRELIZUMAB
     Indication: Relapsing-remitting multiple sclerosis
     Route: 042

REACTIONS (6)
  - Trigeminal neuralgia [Recovering/Resolving]
  - Gastrointestinal disorder [Recovering/Resolving]
  - Lymphadenopathy [Recovering/Resolving]
  - Pneumonia [Recovering/Resolving]
  - Pyrexia [Recovering/Resolving]
  - Rash [Recovering/Resolving]
